FAERS Safety Report 24700281 (Version 1)
Quarter: 2024Q4

REPORT INFORMATION
  Report Type: Spontaneous
  Country: MX (occurrence: MX)
  Receive Date: 20241205
  Receipt Date: 20241205
  Transmission Date: 20250115
  Serious: Yes (Life-Threatening, Hospitalization, Other)
  Sender: ALKEM
  Company Number: MX-ALKEM LABORATORIES LIMITED-MX-ALKEM-2024-01125

PATIENT
  Age: 75 Year
  Sex: Male

DRUGS (3)
  1. METFORMIN HYDROCHLORIDE [Suspect]
     Active Substance: METFORMIN HYDROCHLORIDE
     Indication: Type 2 diabetes mellitus
     Dosage: 2.6 MILLIGRAM, QD
     Route: 065
  2. CHLORPROPAMIDE [Concomitant]
     Active Substance: CHLORPROPAMIDE
     Indication: Type 2 diabetes mellitus
     Dosage: 1 GRAM, QD
     Route: 065
  3. TELMISARTAN [Concomitant]
     Active Substance: TELMISARTAN
     Indication: Hypertension
     Dosage: 80 MILLIGRAM, QD
     Route: 065

REACTIONS (1)
  - Lactic acidosis [Recovering/Resolving]
